FAERS Safety Report 8893522 (Version 1)
Quarter: 2012Q4

REPORT INFORMATION
  Report Type: 
  Country: US (occurrence: US)
  Receive Date: 20121107
  Receipt Date: 20121107
  Transmission Date: 20130627
  Serious: No
  Sender: FDA-Public Use
  Company Number: US-AMGEN-USASP2011052839

PATIENT
  Age: 68 Year
  Sex: Female

DRUGS (2)
  1. ENBREL [Suspect]
     Indication: RHEUMATOID ARTHRITIS
     Dosage: 50 mg, UNK
     Dates: start: 20110715, end: 20110901
  2. REMICADE [Concomitant]
     Dosage: UNK
     Dates: start: 201109

REACTIONS (1)
  - Drug ineffective [Not Recovered/Not Resolved]
